FAERS Safety Report 7935393-1 (Version None)
Quarter: 2011Q4

REPORT INFORMATION
  Report Type: 
  Country: None (occurrence: None)
  Receive Date: 20111122
  Receipt Date: 20111114
  Transmission Date: 20120403
  Serious: Yes (Death, Hospitalization)
  Sender: FDA-Public Use
  Company Number: FR-MERCK-1111FRA00045

PATIENT
  Age: 52 Year
  Sex: Male
  Weight: 101 kg

DRUGS (4)
  1. [COMPOSITION UNSPECIFIED] [Concomitant]
     Route: 048
  2. ISENTRESS [Suspect]
     Indication: HIV INFECTION
     Route: 048
     Dates: start: 20100416, end: 20100928
  3. NEVIRAPINE [Concomitant]
     Indication: HIV INFECTION
     Route: 048
     Dates: start: 20100416, end: 20100928
  4. ABACAVIR SULFATE AND LAMIVUDINE [Concomitant]
     Route: 048
     Dates: start: 20100416, end: 20100928

REACTIONS (7)
  - SHOCK [None]
  - RESPIRATORY DISTRESS [None]
  - RENAL FAILURE ACUTE [None]
  - ENCEPHALOPATHY [None]
  - CLOSTRIDIUM DIFFICILE COLITIS [None]
  - SUPERINFECTION [None]
  - LUNG DISORDER [None]
